FAERS Safety Report 19877171 (Version 1)
Quarter: 2021Q3

REPORT INFORMATION
  Report Type: Spontaneous
  Country: US (occurrence: US)
  Receive Date: 20210923
  Receipt Date: 20210923
  Transmission Date: 20211014
  Serious: Yes (Hospitalization)
  Sender: FDA-Public Use
  Company Number: None

PATIENT
  Sex: Male

DRUGS (2)
  1. VENCLEXTA [Concomitant]
     Active Substance: VENETOCLAX
  2. ONUREG [Suspect]
     Active Substance: AZACITIDINE
     Indication: ACUTE MYELOID LEUKAEMIA
     Route: 048
     Dates: start: 20210819

REACTIONS (2)
  - Thrombosis [None]
  - Colonoscopy abnormal [None]
